FAERS Safety Report 4731890-0 (Version None)
Quarter: 2005Q3

REPORT INFORMATION
  Report Type: 
  Country: None (occurrence: None)
  Receive Date: 20050725
  Receipt Date: 20041116
  Transmission Date: 20060218
  Serious: Yes (Disabling)
  Sender: FDA-Public Use
  Company Number: WAES 0411USA02742

PATIENT
  Age: 52 Year
  Sex: Female

DRUGS (7)
  1. VIOXX [Suspect]
     Indication: OSTEOARTHRITIS
     Dosage: 25 MG/DAILY/PO
     Route: 048
     Dates: start: 20030201, end: 20041201
  2. VIOXX [Suspect]
     Indication: PAIN
     Dosage: 25 MG/DAILY/PO
     Route: 048
     Dates: start: 20030201, end: 20041201
  3. ADALAT [Concomitant]
  4. LOTREL [Concomitant]
  5. UNIPHYL [Concomitant]
  6. ALBUTEROL [Concomitant]
  7. PREDNISONE [Concomitant]

REACTIONS (2)
  - HYPERTENSION [None]
  - PALPITATIONS [None]
